FAERS Safety Report 19203337 (Version 3)
Quarter: 2022Q1

REPORT INFORMATION
  Report Type: Spontaneous
  Country: JP (occurrence: JP)
  Receive Date: 20210430
  Receipt Date: 20220112
  Transmission Date: 20220423
  Serious: Yes (Disabling, Other)
  Sender: FDA-Public Use
  Company Number: JP-CELGENE-JPN-20210406907

PATIENT
  Age: 65 Year
  Sex: Male
  Weight: 65.8 kg

DRUGS (11)
  1. ABRAXANE [Suspect]
     Active Substance: PACLITAXEL
     Indication: Pancreatic carcinoma metastatic
     Route: 041
     Dates: start: 20190726, end: 20200928
  2. GEMCITABINE [Suspect]
     Active Substance: GEMCITABINE
     Indication: Pancreatic carcinoma metastatic
     Route: 041
     Dates: start: 20190726, end: 20200928
  3. URSO [Concomitant]
     Active Substance: URSODIOL
     Indication: Hepatic function abnormal
     Dosage: 6 TABLETS PER DAY
     Route: 065
     Dates: start: 20200816, end: 20200928
  4. ASPIRIN\LANSOPRAZOLE [Concomitant]
     Active Substance: ASPIRIN\LANSOPRAZOLE
     Indication: Product used for unknown indication
     Route: 065
  5. AMLODIPINE BESYLATE\IRBESARTAN [Concomitant]
     Active Substance: AMLODIPINE BESYLATE\IRBESARTAN
     Indication: Product used for unknown indication
     Route: 065
  6. IRBESARTAN [Concomitant]
     Active Substance: IRBESARTAN
     Indication: Product used for unknown indication
     Route: 065
  7. FUROSEMIDE [Concomitant]
     Active Substance: FUROSEMIDE
     Indication: Nephropathy toxic
     Dosage: 20 MILLIGRAM
     Route: 065
     Dates: start: 20211015
  8. CALCIUM POLYSTYRENE SULFONATE [Concomitant]
     Active Substance: CALCIUM POLYSTYRENE SULFONATE
     Indication: Nephropathy toxic
     Dosage: 15 MILLIGRAM
     Route: 065
     Dates: start: 20201022, end: 20201207
  9. SOLU-MEDROL [Concomitant]
     Active Substance: METHYLPREDNISOLONE SODIUM SUCCINATE
     Indication: Nephropathy toxic
     Route: 065
     Dates: start: 20201110, end: 20201112
  10. PREDONINE [Concomitant]
     Active Substance: PREDNISOLONE
     Indication: Nephropathy toxic
     Dosage: 30 MILLIGRAM
     Route: 065
     Dates: start: 20201113
  11. SAMSCA [Concomitant]
     Active Substance: TOLVAPTAN
     Indication: Abdominal distension
     Dosage: 3.75 MILLIGRAM
     Route: 065
     Dates: start: 20201126, end: 20201207

REACTIONS (3)
  - Nephropathy toxic [Not Recovered/Not Resolved]
  - Myelosuppression [Recovering/Resolving]
  - Thrombotic microangiopathy [Not Recovered/Not Resolved]

NARRATIVE: CASE EVENT DATE: 20201012
